FAERS Safety Report 4446930-6 (Version None)
Quarter: 2004Q3

REPORT INFORMATION
  Report Type: 
  Country: None (occurrence: None)
  Receive Date: 20040908
  Receipt Date: 20040824
  Transmission Date: 20050211
  Serious: Yes (Life-Threatening)
  Sender: FDA-Public Use
  Company Number: 207739

PATIENT
  Age: 50 Year
  Sex: Female
  Weight: 95 kg

DRUGS (9)
  1. RITUXIMAB OR PLACEBO (RITUXIMAB) CONC FOR SOLUTION FOR INFUSION [Suspect]
     Indication: RHEUMATOID ARTHRITIS
     Dosage: 1000 MG, 1/WEEK; INTRAVENOUS
     Route: 042
     Dates: start: 20040616, end: 20040630
  2. PREDNISONE [Suspect]
     Indication: RHEUMATOID ARTHRITIS
     Dosage: 30 MG, ORAL;  60 MG, ORAL
     Route: 048
     Dates: start: 20040617, end: 20040629
  3. METHYLPREDNISOLONE [Suspect]
     Indication: RHEUMATOID ARTHRITIS
     Dosage: 100 MG, 1/WEEK; INTRAVENOUS
     Route: 042
     Dates: start: 20040616, end: 20040630
  4. METHOTREXATE [Concomitant]
  5. PREDNISOLONE [Concomitant]
  6. SOTALOL HCL [Concomitant]
  7. OMEPRAZOLE [Concomitant]
  8. CIPRAMIL (CITALOPRAM) [Concomitant]
  9. DAFALGAN (ACETAMINOPHEN) [Concomitant]

REACTIONS (5)
  - CARDIAC TAMPONADE [None]
  - CARDIO-RESPIRATORY ARREST [None]
  - NEUTROPHIL COUNT INCREASED [None]
  - PERICARDITIS [None]
  - SHOCK [None]
